FAERS Safety Report 5832222-7 (Version None)
Quarter: 2008Q3

REPORT INFORMATION
  Report Type: 
  Country: None (occurrence: None)
  Receive Date: 20080804
  Receipt Date: 20080728
  Transmission Date: 20090109
  Serious: Yes (Hospitalization)
  Sender: FDA-Public Use
  Company Number: US-JNJFOC-20080503687

PATIENT
  Sex: Female

DRUGS (4)
  1. EXTRA STRENGTH TYLENOL [Suspect]
  2. EXTRA STRENGTH TYLENOL [Suspect]
     Indication: PAIN
  3. CHILDRENS TYLENOL PLUS COUGH + SORE THROAT CHERRY [Suspect]
     Indication: OROPHARYNGEAL PAIN
     Route: 048
  4. ASPIRIN [Concomitant]

REACTIONS (7)
  - HYPERSENSITIVITY [None]
  - MUSCLE ATROPHY [None]
  - OEDEMA PERIPHERAL [None]
  - PAIN IN EXTREMITY [None]
  - PALPITATIONS [None]
  - RASH [None]
  - VERTIGO [None]
